FAERS Safety Report 6429397-8 (Version None)
Quarter: 2009Q4

REPORT INFORMATION
  Report Type: 
  Country: None (occurrence: None)
  Receive Date: 20091105
  Receipt Date: 20090223
  Transmission Date: 20100525
  Serious: No
  Sender: FDA-Public Use
  Company Number: US-ABBOTT-09P-163-0558959-00

PATIENT
  Sex: Female
  Weight: 58.566 kg

DRUGS (3)
  1. KALETRA [Suspect]
     Indication: HIV INFECTION
     Dosage: 50/200 2 TABS BID
     Dates: start: 20060101
  2. ENABLEX [Concomitant]
     Indication: DRUG USE FOR UNKNOWN INDICATION
  3. IMODIUM [Concomitant]
     Indication: DIARRHOEA
     Dosage: PRN

REACTIONS (3)
  - BLOOD TRIGLYCERIDES INCREASED [None]
  - DIARRHOEA [None]
  - NASOPHARYNGITIS [None]
